FAERS Safety Report 11220683 (Version 2)
Quarter: 2015Q3

REPORT INFORMATION
  Report Type: Spontaneous
  Country: US (occurrence: US)
  Receive Date: 20150626
  Receipt Date: 20150904
  Transmission Date: 20151125
  Serious: No
  Sender: FDA-Public Use
  Company Number: US-ASTRAZENECA-2015SE59604

PATIENT
  Age: 26243 Day
  Sex: Female
  Weight: 86.2 kg

DRUGS (6)
  1. BYETTA [Suspect]
     Active Substance: EXENATIDE
     Route: 065
  2. BYDUREON [Suspect]
     Active Substance: EXENATIDE
     Indication: TYPE 2 DIABETES MELLITUS
     Dosage: PEN 2 MG 4 COUNT, 2 MG, ONCE A WEEK
     Route: 058
     Dates: start: 201410
  3. METOPROLOL UNSPECIFIED [Suspect]
     Active Substance: METOPROLOL
     Indication: BLOOD PRESSURE ABNORMAL
     Route: 065
  4. GLIPIZIDE. [Concomitant]
     Active Substance: GLIPIZIDE
     Indication: DIABETES MELLITUS
  5. ASPIRIN. [Concomitant]
     Active Substance: ASPIRIN
  6. VITAMIN [Concomitant]
     Active Substance: VITAMINS

REACTIONS (4)
  - Product quality issue [Unknown]
  - Injection site mass [Unknown]
  - Underdose [Unknown]
  - Body height decreased [Not Recovered/Not Resolved]

NARRATIVE: CASE EVENT DATE: 20150823
